FAERS Safety Report 5739775-8 (Version None)
Quarter: 2008Q2

REPORT INFORMATION
  Report Type: 
  Country: None (occurrence: None)
  Receive Date: 20080512
  Receipt Date: 20080512
  Transmission Date: 20081010
  Serious: Yes (Hospitalization)
  Sender: FDA-Public Use
  Company Number: None

PATIENT
  Sex: Female
  Weight: 65.0912 kg

DRUGS (7)
  1. CETUXIMAB BMS [Suspect]
     Indication: HEAD AND NECK CANCER
     Dosage: 425MG WEEKLY IV
     Route: 042
     Dates: start: 20080501, end: 20080508
  2. DASATINIB BMS [Suspect]
     Indication: HEAD AND NECK CANCER
     Dosage: 150MG DAILY PO
     Route: 048
     Dates: start: 20080430, end: 20080508
  3. REGLAN [Concomitant]
  4. IMITREX [Concomitant]
  5. COMPAZINE [Concomitant]
  6. VICODIN [Concomitant]
  7. FLONASE [Concomitant]

REACTIONS (2)
  - DYSPNOEA [None]
  - PAIN [None]
